FAERS Safety Report 8164861 (Version 3)
Quarter: 2012Q4

REPORT INFORMATION
  Report Type: 
  Country: FR (occurrence: FR)
  Receive Date: 20111003
  Receipt Date: 20121010
  Transmission Date: 20130627
  Serious: Yes (Hospitalization, Other)
  Sender: FDA-Public Use
  Company Number: FR-BRISTOL-MYERS SQUIBB COMPANY-16113607

PATIENT
  Age: 49 Year
  Sex: Female

DRUGS (4)
  1. ABILIFY [Suspect]
     Indication: DEPRESSION
     Route: 048
     Dates: start: 201104, end: 20110730
  2. ABILIFY [Suspect]
     Indication: BIPOLAR DISORDER
     Route: 048
     Dates: start: 201104, end: 20110730
  3. SEROPLEX [Suspect]
     Indication: DEPRESSION
     Dosage: 1 dosage form: scored film-coated tablet;  escitalopram oxalate 10 mg
     Route: 048
     Dates: start: 201104, end: 20110730
  4. PARKINANE [Suspect]
     Indication: DEPRESSION
     Dosage: 1 dosage form: extended-release capsule; trihexyphenidyl hydrochlopride 5 mg,
     Route: 048
     Dates: start: 201104, end: 20110730

REACTIONS (5)
  - Fall [Not Recovered/Not Resolved]
  - Aphasia [Not Recovered/Not Resolved]
  - Cerebral haematoma [Not Recovered/Not Resolved]
  - Hemiplegia [Not Recovered/Not Resolved]
  - Cerebrovascular accident [Unknown]
